FAERS Safety Report 10082334 (Version 1)
Quarter: 2014Q2

REPORT INFORMATION
  Report Type: Spontaneous
  Country: US (occurrence: None)
  Receive Date: 20140414
  Receipt Date: 20140414
  Transmission Date: 20141212
  Serious: No
  Sender: FDA-Public Use
  Company Number: None

PATIENT
  Age: 29 Year
  Sex: Female
  Weight: 65.77 kg

DRUGS (1)
  1. DIFFERIN CREAM [Suspect]
     Indication: ACNE
     Route: 061
     Dates: start: 20140317, end: 20140413

REACTIONS (1)
  - Condition aggravated [None]
